FAERS Safety Report 7822323-6 (Version None)
Quarter: 2011Q4

REPORT INFORMATION
  Report Type: 
  Country: None (occurrence: None)
  Receive Date: 20111018
  Receipt Date: 20110411
  Transmission Date: 20120403
  Serious: No
  Sender: FDA-Public Use
  Company Number: US-ASTRAZENECA-2011SE12807

PATIENT
  Age: 68 Year
  Sex: Male
  Weight: 113.4 kg

DRUGS (5)
  1. SYMBICORT [Suspect]
     Dosage: USED AT NIGHT
     Route: 055
  2. SYMBICORT [Suspect]
     Indication: BRONCHITIS CHRONIC
     Dosage: 320 MCG TWO TIMES A DAY
     Route: 055
     Dates: start: 20110101
  3. DIOVAN HCT [Concomitant]
     Indication: HYPERTENSION
     Dosage: 320/25
     Route: 048
  4. ALPHAGAN [Concomitant]
     Indication: GLAUCOMA
     Route: 061
  5. SYMBICORT [Suspect]
     Dosage: TWO PUFFS TWO TIMES A DAY
     Route: 055

REACTIONS (4)
  - NASOPHARYNGITIS [None]
  - WRONG TECHNIQUE IN DRUG USAGE PROCESS [None]
  - DRUG DOSE OMISSION [None]
  - WHEEZING [None]
